FAERS Safety Report 7328092-0 (Version None)
Quarter: 2011Q1

REPORT INFORMATION
  Report Type: 
  Country: None (occurrence: None)
  Receive Date: 20110303
  Receipt Date: 20110221
  Transmission Date: 20110831
  Serious: Yes (Hospitalization)
  Sender: FDA-Public Use
  Company Number: JP-JNJFOC-20110300003

PATIENT
  Age: 52 Year
  Sex: Male

DRUGS (5)
  1. INAVIR (LANINAMIVIR OCTANOATE) [Suspect]
     Indication: INFLUENZA
     Route: 055
  2. PL GRAN [Concomitant]
     Route: 065
  3. RESPLEN [Concomitant]
     Route: 065
  4. CRAVIT [Suspect]
     Indication: INFECTION PROPHYLAXIS
     Route: 048
     Dates: start: 20110205, end: 20110206
  5. CALONAL [Concomitant]
     Route: 065

REACTIONS (1)
  - PNEUMONIA [None]
